FAERS Safety Report 8346138-8 (Version None)
Quarter: 2012Q2

REPORT INFORMATION
  Report Type: 
  Country: None (occurrence: None)
  Receive Date: 20120509
  Receipt Date: 20120501
  Transmission Date: 20120825
  Serious: Yes (Death)
  Sender: FDA-Public Use
  Company Number: US-CELGENEUS-163-21880-12020624

PATIENT
  Sex: Female

DRUGS (13)
  1. NEURONTIN [Concomitant]
     Dosage: 100 MILLIGRAM
     Route: 065
  2. PLAVIX [Concomitant]
     Dosage: 75 MILLIGRAM
     Route: 065
  3. AMBIEN [Concomitant]
     Dosage: 10 MILLIGRAM
     Route: 065
  4. ZONDAR [Concomitant]
     Dosage: 30 MILLIGRAM
     Route: 065
  5. TRICOR [Concomitant]
     Dosage: 145 MILLIGRAM
     Route: 065
  6. ASPIRIN [Concomitant]
     Dosage: 325 MILLIGRAM
     Route: 065
  7. ULTRAM [Concomitant]
     Dosage: 50 MILLIGRAM
     Route: 065
  8. LEVOTHYROXINE SODIUM [Concomitant]
     Dosage: 125 MILLIGRAM
     Route: 065
  9. CELEXA [Concomitant]
     Dosage: 20 MILLIGRAM
     Route: 065
  10. LOPRESSOR [Concomitant]
     Dosage: 50 MILLIGRAM
     Route: 065
  11. REVLIMID [Suspect]
     Indication: MULTIPLE MYELOMA
     Dosage: 25 MILLIGRAM
     Route: 048
     Dates: start: 20120116, end: 20120101
  12. LASIX [Concomitant]
     Dosage: 20 MILLIGRAM
     Route: 065
  13. ZETIA [Concomitant]
     Dosage: 10 MILLIGRAM
     Route: 065

REACTIONS (1)
  - MULTIPLE MYELOMA [None]
